FAERS Safety Report 12469523 (Version 1)
Quarter: 2016Q2

REPORT INFORMATION
  Report Type: Spontaneous
  Country: US (occurrence: US)
  Receive Date: 20160615
  Receipt Date: 20160615
  Transmission Date: 20160815
  Serious: No
  Sender: FDA-Public Use
  Company Number: US-GALDERMA-US16001707

PATIENT
  Sex: Female

DRUGS (3)
  1. HYDROXATONE MILK CLEANSER [Concomitant]
     Indication: THERAPEUTIC SKIN CARE TOPICAL
     Route: 061
  2. NEUTROGENA HYDRAGEL [Concomitant]
     Indication: THERAPEUTIC SKIN CARE TOPICAL
     Route: 061
  3. MIRVASO [Suspect]
     Active Substance: BRIMONIDINE TARTRATE
     Indication: ROSACEA
     Dosage: 0.33%
     Route: 061
     Dates: start: 20150303, end: 20150701

REACTIONS (3)
  - Drug ineffective [Recovered/Resolved]
  - Acne [Unknown]
  - Rash macular [Unknown]

NARRATIVE: CASE EVENT DATE: 2015
